FAERS Safety Report 5522762-2 (Version None)
Quarter: 2007Q4

REPORT INFORMATION
  Report Type: 
  Country: None (occurrence: None)
  Receive Date: 20071120
  Receipt Date: 20071029
  Transmission Date: 20080405
  Serious: No
  Sender: FDA-Public Use
  Company Number: US-BOEHRINGER INGELHEIM PHARMACEUTICALS, INC.-2007-BP-23592BP

PATIENT
  Sex: Female

DRUGS (10)
  1. AGGRENOX [Suspect]
     Indication: CEREBROVASCULAR ACCIDENT PROPHYLAXIS
     Route: 048
     Dates: start: 20010101
  2. AGGRENOX [Suspect]
     Indication: TRANSIENT ISCHAEMIC ATTACK
  3. CLARITIN [Concomitant]
     Indication: MULTIPLE ALLERGIES
     Route: 048
  4. ATACAND [Concomitant]
     Indication: HYPERTENSION
     Route: 048
  5. NORVASC [Concomitant]
     Indication: HYPERTENSION
     Route: 048
  6. PENTASA [Concomitant]
     Indication: COLITIS ULCERATIVE
     Route: 048
  7. FLORA-Q [Concomitant]
     Indication: DIARRHOEA
  8. BONIVA [Concomitant]
  9. VITAMIN B-12 [Concomitant]
  10. ALLERGY INJECTIONS [Concomitant]
     Indication: HYPERSENSITIVITY

REACTIONS (1)
  - HEADACHE [None]
